FAERS Safety Report 6931019-4 (Version None)
Quarter: 2010Q3

REPORT INFORMATION
  Report Type: 
  Country: None (occurrence: None)
  Receive Date: 20100817
  Receipt Date: 20100817
  Transmission Date: 20110219
  Serious: No
  Sender: FDA-Public Use
  Company Number: None

PATIENT
  Age: 39 Year
  Sex: Female
  Weight: 55.3388 kg

DRUGS (2)
  1. NAPROXEN [Suspect]
     Indication: FEELING COLD
     Dosage: 500 MG 1 TABLET 2X DAILY PO
     Route: 048
     Dates: start: 20100811, end: 20100815
  2. NAPROXEN [Suspect]
     Indication: HYPOAESTHESIA
     Dosage: 500 MG 1 TABLET 2X DAILY PO
     Route: 048
     Dates: start: 20100811, end: 20100815

REACTIONS (7)
  - ABDOMINAL PAIN UPPER [None]
  - DYSPEPSIA [None]
  - FEELING ABNORMAL [None]
  - INFLUENZA LIKE ILLNESS [None]
  - INSOMNIA [None]
  - NASAL CONGESTION [None]
  - OROPHARYNGEAL PAIN [None]
